FAERS Safety Report 22994044 (Version 2)
Quarter: 2023Q4

REPORT INFORMATION
  Report Type: Report from Study
  Country: US (occurrence: US)
  Receive Date: 20230927
  Receipt Date: 20231012
  Transmission Date: 20240110
  Serious: Yes (Death, Other)
  Sender: FDA-Public Use
  Company Number: US-PFIZER INC-202300309124

PATIENT

DRUGS (4)
  1. OXALIPLATIN [Suspect]
     Active Substance: OXALIPLATIN
     Indication: Pancreatic carcinoma metastatic
     Dosage: 60 MG/M2, CONTINUOUS IV INFUSION OVER 46 H) ON DAYS 1 + 15 OF A 28-DAY CYCLE
     Route: 042
  2. IRINOTECAN [Suspect]
     Active Substance: IRINOTECAN
     Indication: Pancreatic carcinoma metastatic
     Dosage: 50 MG/M2, LIPOSOMAL, CONTINUOUS IV INFUSION OVER 46 H) ON DAYS 1 + 15 OF A 28-DAY CYCLE
     Route: 042
  3. LEUCOVORIN CALCIUM [Suspect]
     Active Substance: LEUCOVORIN CALCIUM
     Indication: Pancreatic carcinoma metastatic
     Dosage: 400 MG/M2, CONTINUOUS IV INFUSION OVER 46 H) ON DAYS 1 + 15 OF A 28-DAY CYCLE
     Route: 042
  4. FLUOROURACIL [Suspect]
     Active Substance: FLUOROURACIL
     Indication: Pancreatic carcinoma metastatic
     Dosage: 2400 MG/M2, CONTINUOUS IV INFUSION OVER 46 H) ON DAYS 1 + 15 OF A 28-DAY CYCLE
     Route: 042

REACTIONS (1)
  - Death [Fatal]
